FAERS Safety Report 24773710 (Version 2)
Quarter: 2024Q4

REPORT INFORMATION
  Report Type: Spontaneous
  Country: PL (occurrence: PL)
  Receive Date: 20241225
  Receipt Date: 20241225
  Transmission Date: 20250114
  Serious: Yes (Hospitalization)
  Sender: ALEXION PHARMACEUTICALS
  Company Number: PL-ASTRAZENECA-202412EEA008308PL

PATIENT
  Age: 44 Year

DRUGS (4)
  1. LYNPARZA [Suspect]
     Active Substance: OLAPARIB
     Indication: Breast cancer
     Dosage: 400 MILLIGRAM
     Route: 065
  2. LYNPARZA [Suspect]
     Active Substance: OLAPARIB
     Dosage: 400 MILLIGRAM
     Route: 065
  3. LYNPARZA [Suspect]
     Active Substance: OLAPARIB
     Dosage: 400 MILLIGRAM
     Route: 065
  4. LYNPARZA [Suspect]
     Active Substance: OLAPARIB
     Dosage: 400 MILLIGRAM
     Route: 065

REACTIONS (3)
  - Anaemia [Unknown]
  - Infection [Unknown]
  - Folate deficiency [Unknown]
